FAERS Safety Report 6025541-5 (Version None)
Quarter: 2008Q4

REPORT INFORMATION
  Report Type: 
  Country: None (occurrence: None)
  Receive Date: 20081231
  Receipt Date: 20081219
  Transmission Date: 20090506
  Serious: Yes (Other)
  Sender: FDA-Public Use
  Company Number: GB-CELGENEUS-167-20785-08121386

PATIENT

DRUGS (6)
  1. THALIDOMIDE [Suspect]
     Route: 065
  2. THALIDOMIDE [Suspect]
     Dosage: 100-200MG
     Route: 048
  3. DEXAMETHASONE [Suspect]
     Route: 065
  4. CLARITHROMYCIN [Suspect]
     Route: 065
  5. PAMIDRONATE DISODIUM [Concomitant]
     Indication: DRUG USE FOR UNKNOWN INDICATION
     Route: 051
  6. ZOLEDRONIC ACID [Concomitant]
     Indication: DRUG USE FOR UNKNOWN INDICATION
     Route: 051

REACTIONS (8)
  - B-CELL LYMPHOMA [None]
  - CONSTIPATION [None]
  - INFECTION [None]
  - INTESTINAL PERFORATION [None]
  - NEUROPATHY PERIPHERAL [None]
  - NEUTROPENIA [None]
  - OEDEMA [None]
  - SPINAL CORD COMPRESSION [None]
